FAERS Safety Report 8517069-5 (Version None)
Quarter: 2012Q3

REPORT INFORMATION
  Report Type: 
  Country: None (occurrence: None)
  Receive Date: 20120706
  Receipt Date: 20120625
  Transmission Date: 20120928
  Serious: Yes (Other)
  Sender: FDA-Public Use
  Company Number: 2012P1045409

PATIENT
  Age: 67 Year
  Sex: Female

DRUGS (4)
  1. DEXAMETHASONE [Suspect]
     Indication: BLOOD IMMUNOGLOBULIN A
     Dosage: 20 MG;PO ; 12 MG;PO
     Route: 048
  2. LENALIDOMIDE [Suspect]
     Indication: BLOOD IMMUNOGLOBULIN A
     Dosage: 5 MG;QD;PO ; 10 MG;PO
     Route: 048
  3. CYCLOPHOSPHAMIDE [Concomitant]
  4. BORTEZOMIB [Concomitant]

REACTIONS (7)
  - TETANY [None]
  - HYPOMAGNESAEMIA [None]
  - PANCYTOPENIA [None]
  - OSTEOPENIA [None]
  - BLOOD ALKALINE PHOSPHATASE INCREASED [None]
  - PATHOLOGICAL FRACTURE [None]
  - OSTEOSCLEROSIS [None]
